FAERS Safety Report 7624975-2 (Version None)
Quarter: 2011Q3

REPORT INFORMATION
  Report Type: 
  Country: None (occurrence: None)
  Receive Date: 20110721
  Receipt Date: 20110713
  Transmission Date: 20111222
  Serious: Yes (Hospitalization)
  Sender: FDA-Public Use
  Company Number: AU-BIOGENIDEC-2011BI020567

PATIENT
  Age: 64 Year
  Sex: Female

DRUGS (3)
  1. TYSABRI [Suspect]
     Route: 042
     Dates: start: 20110330, end: 20110501
  2. TYSABRI [Suspect]
     Indication: MULTIPLE SCLEROSIS
     Route: 042
     Dates: start: 20110330, end: 20110501
  3. TYSABRI [Suspect]
     Route: 042
     Dates: start: 20110608

REACTIONS (3)
  - SEPSIS [None]
  - RENAL FAILURE [None]
  - PYELONEPHRITIS [None]
